FAERS Safety Report 10188864 (Version 2)
Quarter: 2014Q2

REPORT INFORMATION
  Report Type: Spontaneous
  Country: US (occurrence: US)
  Receive Date: 20140522
  Receipt Date: 20140610
  Transmission Date: 20141212
  Serious: Yes (Life-Threatening, Other)
  Sender: FDA-Public Use
  Company Number: US-PFIZER INC-2014138783

PATIENT
  Age: 55 Year
  Sex: Female

DRUGS (1)
  1. SOLU-MEDROL [Suspect]
     Dosage: UNK

REACTIONS (1)
  - Anaphylactic reaction [Unknown]
